FAERS Safety Report 5239730-0 (Version None)
Quarter: 2007Q1

REPORT INFORMATION
  Report Type: 
  Country: None (occurrence: None)
  Receive Date: 20070216
  Receipt Date: 20070208
  Transmission Date: 20070707
  Serious: Yes (Hospitalization)
  Sender: FDA-Public Use
  Company Number: SE-JNJFOC-20070203402

PATIENT
  Sex: Female

DRUGS (1)
  1. NOBLIGAN [Suspect]
     Indication: BACK PAIN
     Route: 048

REACTIONS (3)
  - DEPENDENCE [None]
  - DRUG WITHDRAWAL SYNDROME [None]
  - PERSONALITY DISORDER [None]
